FAERS Safety Report 8026990-6 (Version None)
Quarter: 2012Q1

REPORT INFORMATION
  Report Type: 
  Country: None (occurrence: None)
  Receive Date: 20120106
  Receipt Date: 20120104
  Transmission Date: 20120608
  Serious: Yes (Other)
  Sender: FDA-Public Use
  Company Number: US-PFIZER INC-2012003643

PATIENT
  Sex: Female
  Weight: 43.084 kg

DRUGS (3)
  1. PROZAC [Concomitant]
     Indication: DEPRESSION
     Dosage: 20 MG, DAILY IN THE MORNING
  2. GEODON [Suspect]
     Indication: AFFECTIVE DISORDER
     Dosage: 80 MG, DAILY IN THE EVENING
     Route: 048
     Dates: start: 20111226
  3. GEODON [Suspect]
     Indication: PERSONALITY DISORDER

REACTIONS (10)
  - TONGUE OEDEMA [None]
  - AGITATION [None]
  - PYREXIA [None]
  - SWELLING FACE [None]
  - MYDRIASIS [None]
  - EYE DISORDER [None]
  - FEELING HOT [None]
  - RESTLESSNESS [None]
  - LIP DISORDER [None]
  - NAUSEA [None]
